FAERS Safety Report 23795494 (Version 1)
Quarter: 2024Q2

REPORT INFORMATION
  Report Type: Spontaneous
  Country: US (occurrence: US)
  Receive Date: 20240429
  Receipt Date: 20240429
  Transmission Date: 20240716
  Serious: Yes (Other)
  Sender: FDA-Public Use
  Company Number: US-REGENERON PHARMACEUTICALS, INC.-2024-062929

PATIENT
  Sex: Female

DRUGS (1)
  1. LIBTAYO [Suspect]
     Active Substance: CEMIPLIMAB-RWLC
     Indication: Squamous cell carcinoma

REACTIONS (6)
  - Brain neoplasm [Unknown]
  - Rash macular [Unknown]
  - Rash [Unknown]
  - Rash pustular [Unknown]
  - Rash erythematous [Unknown]
  - Skin ulcer [Unknown]
